FAERS Safety Report 10797244 (Version 3)
Quarter: 2015Q1

REPORT INFORMATION
  Report Type: Spontaneous
  Country: FR (occurrence: FR)
  Receive Date: 20150216
  Receipt Date: 20150304
  Transmission Date: 20150721
  Serious: Yes (Other)
  Sender: FDA-Public Use
  Company Number: FR-JNJFOC-20150116890

PATIENT
  Sex: Male

DRUGS (1)
  1. REMICADE [Suspect]
     Active Substance: INFLIXIMAB
     Indication: PSORIASIS
     Route: 042

REACTIONS (15)
  - Pneumonitis [Unknown]
  - Monoclonal gammopathy [Unknown]
  - Thrombocytopenia [Unknown]
  - Device related infection [Unknown]
  - Lower gastrointestinal haemorrhage [Unknown]
  - Anaphylactic shock [Unknown]
  - Myelodysplastic syndrome [Unknown]
  - Adverse event [Unknown]
  - Myocardial infarction [Unknown]
  - Renal cancer [Unknown]
  - Bladder cancer [Unknown]
  - Cerebrovascular accident [Unknown]
  - Squamous cell carcinoma [Unknown]
  - Psoriasis [Unknown]
  - Angioedema [Unknown]
